FAERS Safety Report 24572375 (Version 1)
Quarter: 2024Q4

REPORT INFORMATION
  Report Type: Spontaneous
  Country: US (occurrence: US)
  Receive Date: 20241101
  Receipt Date: 20241101
  Transmission Date: 20250115
  Serious: Yes (Other)
  Sender: REGENERON
  Company Number: US-REGENERON PHARMACEUTICALS, INC.-2024-146339

PATIENT
  Sex: Female

DRUGS (5)
  1. PRALUENT [Suspect]
     Active Substance: ALIROCUMAB
     Indication: Hypercholesterolaemia
     Dosage: 150 MG, Q4W
     Route: 065
     Dates: start: 2023
  2. RESTASIS [Concomitant]
     Active Substance: CYCLOSPORINE
     Indication: Eye disorder
     Dosage: UNK
     Route: 065
  3. ASPIRIN [Concomitant]
     Active Substance: ASPIRIN
     Indication: Product used for unknown indication
     Dosage: LOW DOSE, UNK
     Route: 065
  4. TEMAZEPAM [Concomitant]
     Active Substance: TEMAZEPAM
     Indication: Sleep disorder
     Dosage: UNK; WEANING OFF IT
     Route: 065
  5. EZETIMIBE [Concomitant]
     Active Substance: EZETIMIBE
     Indication: Hypercholesterolaemia
     Dosage: UNK
     Route: 065

REACTIONS (3)
  - Nephrolithiasis [Unknown]
  - Uterine leiomyoma [Unknown]
  - Blood urine present [Unknown]
